FAERS Safety Report 5146470-5 (Version None)
Quarter: 2006Q4

REPORT INFORMATION
  Report Type: 
  Country: None (occurrence: None)
  Receive Date: 20061102
  Receipt Date: 20061018
  Transmission Date: 20070319
  Serious: Yes (Hospitalization, Disabling)
  Sender: FDA-Public Use
  Company Number: 2006RL000037

PATIENT
  Age: 88 Year
  Sex: Male
  Weight: 80.7403 kg

DRUGS (7)
  1. RYTHMOL [Suspect]
     Indication: ARRHYTHMIA
     Dosage: 225 MG; BID; PO
     Route: 048
     Dates: start: 20051013, end: 20060120
  2. RYTHMOL [Suspect]
     Indication: ATRIAL FIBRILLATION
     Dosage: 225 MG; BID; PO
     Route: 048
     Dates: start: 20051013, end: 20060120
  3. PRAVACHOL [Concomitant]
  4. LOTREL [Concomitant]
  5. ASPIRIN [Concomitant]
  6. DETROL [Concomitant]
  7. SOTALOL HYDROCHLORIDE [Concomitant]

REACTIONS (16)
  - ANION GAP DECREASED [None]
  - BLOOD CHOLESTEROL INCREASED [None]
  - BLOOD SODIUM DECREASED [None]
  - CONTUSION [None]
  - DRUG INEFFECTIVE [None]
  - FALL [None]
  - FEMUR FRACTURE [None]
  - HAEMATOCRIT DECREASED [None]
  - HAEMOGLOBIN DECREASED [None]
  - HIP FRACTURE [None]
  - INTERNATIONAL NORMALISED RATIO INCREASED [None]
  - LYMPHOCYTE COUNT DECREASED [None]
  - MONOCYTE COUNT INCREASED [None]
  - OPERATIVE HAEMORRHAGE [None]
  - PAIN IN EXTREMITY [None]
  - PROTHROMBIN TIME PROLONGED [None]
